FAERS Safety Report 5838748-4 (Version None)
Quarter: 2008Q3

REPORT INFORMATION
  Report Type: 
  Country: None (occurrence: None)
  Receive Date: 20080808
  Receipt Date: 20080728
  Transmission Date: 20090109
  Serious: Yes (Hospitalization, Other)
  Sender: FDA-Public Use
  Company Number: DE-JNJFOC-20080405322

PATIENT
  Sex: Male
  Weight: 53 kg

DRUGS (8)
  1. RISPERDAL [Suspect]
     Route: 048
  2. RISPERDAL [Suspect]
     Indication: SCHIZOPHRENIA
     Route: 048
  3. LORAZEPAM [Concomitant]
     Route: 048
  4. BELLADONA [Concomitant]
     Route: 048
  5. ESTROPROZAN [Concomitant]
     Route: 048
  6. PANTOPRAZOL [Concomitant]
     Route: 048
  7. CYSTINOL [Concomitant]
     Route: 048
  8. ENALAPRIL MALEATE [Concomitant]

REACTIONS (8)
  - COGNITIVE DISORDER [None]
  - FATIGUE [None]
  - HYPOTHERMIA [None]
  - PERIPHERAL COLDNESS [None]
  - PLEURAL EFFUSION [None]
  - PNEUMONIA [None]
  - PYREXIA [None]
  - SCHIZOPHRENIA, PARANOID TYPE [None]
